FAERS Safety Report 4324623-3 (Version None)
Quarter: 2004Q1

REPORT INFORMATION
  Report Type: 
  Country: None (occurrence: None)
  Receive Date: 20040322
  Receipt Date: 20040309
  Transmission Date: 20041129
  Serious: Yes (Hospitalization)
  Sender: FDA-Public Use
  Company Number: AU-JNJFOC-20040302932

PATIENT
  Age: 82 Year
  Sex: Female

DRUGS (6)
  1. TRAMADOL HCL [Suspect]
     Indication: GENERAL SYMPTOM
     Dosage: 50 MG, IN 1 AS NECESSARY, ORAL
     Route: 048
     Dates: end: 20020305
  2. CIPRAMIL (CITALOPRAM HYDROBROMIDE) [Suspect]
     Indication: DEPRESSION
     Dosage: 10 MG, IN 1 DAY, ORAL
     Route: 048
     Dates: end: 20020305
  3. NITROFURANTOIN [Suspect]
     Indication: PATIENT ISOLATION
     Dosage: 50 MG, IN 1 DAY
     Dates: end: 20020305
  4. OXAZEPAM [Concomitant]
  5. AMLODIPINE [Concomitant]
  6. ACETAMINOPHEN [Concomitant]

REACTIONS (4)
  - CONFUSIONAL STATE [None]
  - FALL [None]
  - HYPONATRAEMIA [None]
  - MARKEDLY REDUCED DIETARY INTAKE [None]
